FAERS Safety Report 20617956 (Version 1)
Quarter: 2022Q1

REPORT INFORMATION
  Report Type: Spontaneous
  Country: JP (occurrence: JP)
  Receive Date: 20220321
  Receipt Date: 20220321
  Transmission Date: 20220424
  Serious: Yes (Other)
  Sender: FDA-Public Use
  Company Number: JP-NAPPMUNDI-GBR-2022-0095703

PATIENT
  Age: 71 Year
  Sex: Male

DRUGS (1)
  1. NORSPAN [Suspect]
     Active Substance: BUPRENORPHINE
     Indication: Back pain
     Dosage: 5 MCG, Q1H [STRENGTH 5 MG]
     Route: 062
     Dates: start: 202202

REACTIONS (3)
  - Metastases to lymph nodes [Unknown]
  - Metastases to bone [Unknown]
  - Cancer pain [Unknown]
